FAERS Safety Report 8433816-5 (Version None)
Quarter: 2012Q2

REPORT INFORMATION
  Report Type: 
  Country: None (occurrence: None)
  Receive Date: 20120613
  Receipt Date: 20120607
  Transmission Date: 20120825
  Serious: Yes (Death, Hospitalization)
  Sender: FDA-Public Use
  Company Number: US-PFIZER INC-2012101087

PATIENT
  Sex: Male

DRUGS (1)
  1. SUTENT [Suspect]
     Indication: RENAL CANCER
     Dosage: 37.5 MG, 1X/DAY X 28 DAYS OUT OF 42 DAYS
     Route: 048
     Dates: start: 20120321

REACTIONS (4)
  - HYPOGLYCAEMIA [None]
  - DEATH [None]
  - METABOLIC ENCEPHALOPATHY [None]
  - MENTAL STATUS CHANGES [None]
